FAERS Safety Report 24550407 (Version 1)
Quarter: 2024Q4

REPORT INFORMATION
  Report Type: Spontaneous
  Country: ES (occurrence: ES)
  Receive Date: 20241025
  Receipt Date: 20241025
  Transmission Date: 20250115
  Serious: Yes (Death, Life-Threatening, Hospitalization, Other)
  Sender: SANDOZ
  Company Number: ES-SZ09-PHHY2012ES011634

PATIENT
  Age: 73 Year
  Sex: Female

DRUGS (8)
  1. ACENOCOUMAROL [Concomitant]
     Active Substance: ACENOCOUMAROL
     Indication: Chest pain
     Route: 065
  2. CALCIUM CARBONATE\CHOLECALCIFEROL [Concomitant]
     Active Substance: CALCIUM CARBONATE\CHOLECALCIFEROL
     Indication: Chest pain
     Dosage: 1 DF, 1250 MG/ 400 U, QD
     Route: 065
  3. LEVOTHYROXINE SODIUM [Concomitant]
     Active Substance: LEVOTHYROXINE SODIUM
     Indication: Chest pain
     Dosage: 75 UG, QD
     Route: 065
  4. AMIODARONE [Interacting]
     Active Substance: AMIODARONE
     Indication: Product used for unknown indication
     Dosage: 200 MG, QD
     Route: 065
  5. FENOFIBRATE [Interacting]
     Active Substance: FENOFIBRATE
     Indication: Hypertriglyceridaemia
     Dosage: 160 MG, QD
     Route: 065
  6. FENOFIBRATE [Interacting]
     Active Substance: FENOFIBRATE
     Indication: Hypercholesterolaemia
  7. ROSUVASTATIN [Interacting]
     Active Substance: ROSUVASTATIN
     Indication: Hypercholesterolaemia
     Dosage: 20 MG, QD
     Route: 065
  8. ROSUVASTATIN [Interacting]
     Active Substance: ROSUVASTATIN
     Indication: Hypertriglyceridaemia

REACTIONS (10)
  - Rhabdomyolysis [Fatal]
  - Blood creatine phosphokinase increased [Fatal]
  - Blood lactate dehydrogenase increased [Fatal]
  - Blood creatinine increased [Fatal]
  - Blood urea increased [Fatal]
  - Hepatic failure [Unknown]
  - Hepatic enzyme increased [Unknown]
  - Alanine aminotransferase increased [Unknown]
  - Aspartate aminotransferase increased [Unknown]
  - Drug interaction [Unknown]
